FAERS Safety Report 4511116-3 (Version None)
Quarter: 2004Q4

REPORT INFORMATION
  Report Type: 
  Country: None (occurrence: None)
  Receive Date: 20041012
  Receipt Date: 20040722
  Transmission Date: 20050328
  Serious: No
  Sender: FDA-Public Use
  Company Number: PHEH2004US07959

PATIENT
  Age: 32 Year
  Sex: Female

DRUGS (3)
  1. ELIDEL [Suspect]
     Indication: ERYTHEMA
     Dosage: QD, TOPICAL
     Route: 061
     Dates: start: 20030101
  2. ETHANOL (ETHANOL) [Suspect]
  3. ORTHO TRI-CYCLEN (NORGESTIMATE) [Concomitant]

REACTIONS (3)
  - ALCOHOL INTERACTION [None]
  - APPLICATION SITE BURNING [None]
  - APPLICATION SITE ERYTHEMA [None]
